FAERS Safety Report 7462430-3 (Version None)
Quarter: 2011Q2

REPORT INFORMATION
  Report Type: 
  Country: None (occurrence: None)
  Receive Date: 20110506
  Receipt Date: 20110428
  Transmission Date: 20111010
  Serious: Yes (Hospitalization, Other)
  Sender: FDA-Public Use
  Company Number: FR-BRISTOL-MYERS SQUIBB COMPANY-15709835

PATIENT
  Age: 74 Year
  Sex: Female

DRUGS (10)
  1. ACETAMINOPHEN [Interacting]
     Indication: PAIN
     Route: 048
     Dates: start: 20110101
  2. METFORMINE [Concomitant]
     Indication: TYPE 1 DIABETES MELLITUS
     Route: 048
  3. NEXIUM [Interacting]
     Dosage: 1DF=1 GASTRO RESISTANT COATED TABLET  STRENGTH IS 20 MG
     Route: 048
     Dates: start: 20101101
  4. STABLON [Concomitant]
     Indication: DEPRESSION
     Dosage: COATED TABLET
     Dates: start: 20110101
  5. COUMADIN [Suspect]
     Indication: ATRIAL FIBRILLATION
     Dosage: 1DF= 1 TABLET
     Route: 048
     Dates: start: 20110119, end: 20110127
  6. LEVOTHYROXINE SODIUM [Interacting]
     Indication: HYPOTHYROIDISM
     Dosage: 1DF=1 TABLET. STRENGTH IS 75 MICROGRAM
     Route: 048
  7. LYRICA [Concomitant]
     Indication: NEUROPATHY PERIPHERAL
     Dosage: CAPSULE
     Route: 048
     Dates: start: 20110104
  8. ATORVASTATIN CALCIUM [Interacting]
     Dosage: STRENGTH IS 10MG 1 DF=1 COATED TABLET.
     Route: 048
     Dates: start: 20110101
  9. SOTALOL HCL [Concomitant]
     Indication: ATRIAL FIBRILLATION
     Route: 048
  10. DIGITALINE NATIVELLE [Concomitant]
     Indication: ATRIAL FIBRILLATION
     Dosage: 1DF=HALF TABLET
     Route: 048
     Dates: start: 20101101

REACTIONS (3)
  - HAEMATOMA [None]
  - HAEMOGLOBIN DECREASED [None]
  - DRUG INTERACTION [None]
